FAERS Safety Report 13629976 (Version 1)
Quarter: 2017Q2

REPORT INFORMATION
  Report Type: Spontaneous
  Country: US (occurrence: US)
  Receive Date: 20170531
  Receipt Date: 20170531
  Transmission Date: 20170830
  Serious: No
  Sender: FDA-Public Use
  Company Number: US-ASTELLAS-1265040

PATIENT
  Sex: Female

DRUGS (1)
  1. TARCEVA [Suspect]
     Active Substance: ERLOTINIB HYDROCHLORIDE
     Indication: PRODUCT USED FOR UNKNOWN INDICATION
     Route: 065

REACTIONS (8)
  - Foreign body [Unknown]
  - Dry throat [Unknown]
  - Cough [Unknown]
  - Eye pruritus [Unknown]
  - Sneezing [Unknown]
  - Hypoaesthesia oral [Unknown]
  - Dysphonia [Unknown]
  - Nasal congestion [Unknown]
